FAERS Safety Report 7929024-4 (Version None)
Quarter: 2011Q4

REPORT INFORMATION
  Report Type: 
  Country: None (occurrence: None)
  Receive Date: 20111118
  Receipt Date: 20111107
  Transmission Date: 20120403
  Serious: Yes (Hospitalization)
  Sender: FDA-Public Use
  Company Number: US-ROCHE-1014146

PATIENT
  Sex: Female

DRUGS (6)
  1. CYCLOPHOSPHAMIDE [Suspect]
     Indication: BREAST CANCER
     Dosage: OVER 30 MIN ON DAY 1, Q21D FOR 4 CYCLES
     Route: 042
     Dates: start: 20040119
  2. DOXORUBICIN HCL [Suspect]
     Indication: BREAST CANCER
     Dosage: ON DAY 1, Q21D FOR 4 CYCLES
     Route: 042
     Dates: start: 20040119
  3. HERCEPTIN [Suspect]
     Indication: BREAST CANCER
     Dosage: LOADING DOSE: OVER 90 MIN AS THE FIRST DOSE
     Route: 042
     Dates: start: 20040119
  4. HERCEPTIN [Suspect]
     Dosage: MAINTAINANCE DOSE- OVER 30 MIN QW ON DAY 1, FOR 52 WEEKS STARTING ON WEEK 13
     Route: 042
  5. TAMOXIFEN CITRATE [Suspect]
     Indication: BREAST CANCER
     Dosage: FOR 5 YEARS
     Route: 048
     Dates: start: 20040119
  6. PACLITAXEL [Suspect]
     Indication: BREAST CANCER
     Dosage: OVER 1 HR QW ON DAY 1, FOR 12 WEEKS STARTING ON WEEK 13
     Route: 042
     Dates: start: 20040119

REACTIONS (1)
  - DEHYDRATION [None]
